FAERS Safety Report 5870702 (Version 31)
Quarter: 2013Q4

REPORT INFORMATION
  Report Type: Spontaneous
  Country: US (occurrence: US)
  Receive Date: 20050831
  Receipt Date: 20131221
  Transmission Date: 20140711
  Serious: Yes (Death, Hospitalization, Other)
  Sender: FDA-Public Use
  Company Number: PHEH2005US09403

PATIENT
  Age: 61 Year
  Sex: Female

DRUGS (77)
  1. AREDIA [Suspect]
     Route: 042
     Dates: start: 1996, end: 200302
  2. ZOMETA [Suspect]
     Indication: METASTASES TO BONE
     Dosage: 4 MG, QW4
     Route: 041
     Dates: start: 20030109, end: 200508
  3. PAXIL [Concomitant]
  4. FASLODEX [Concomitant]
     Dates: start: 200502
  5. PREDNISONE [Concomitant]
  6. FEMARA [Concomitant]
     Dosage: 2.5 MG, QD
     Dates: start: 1996, end: 200302
  7. XELODA [Concomitant]
     Dates: start: 200307, end: 200312
  8. XELODA [Concomitant]
     Dates: start: 200401, end: 200402
  9. ANASTROZOLE [Concomitant]
     Dates: start: 2000, end: 200502
  10. LORAZEPAM [Concomitant]
  11. IBUPROFEN [Concomitant]
  12. CYCLOBENZAPRINE [Concomitant]
  13. ANUSOL                                  /NET/ [Concomitant]
  14. CHLORHEXIDINE [Concomitant]
  15. BISACODYL [Concomitant]
  16. COLYTE ^REED^ [Concomitant]
  17. METHOTREXATE [Concomitant]
  18. FLUOROURACIL [Concomitant]
  19. HEPATITIS B VACCINE [Concomitant]
  20. INFLUENZA VACCINE [Concomitant]
  21. METHYLPREDNISOLONE [Concomitant]
  22. AVASTIN [Concomitant]
  23. PROCRIT                            /00909301/ [Concomitant]
  24. COMPAZINE [Concomitant]
  25. FORTAZ [Concomitant]
  26. KEFLEX                                  /UNK/ [Concomitant]
  27. MEGACE [Concomitant]
  28. PERCOCET [Concomitant]
  29. ANCEF [Concomitant]
  30. GENTAMICIN [Concomitant]
  31. DECADRON                                /CAN/ [Concomitant]
  32. TAGAMET [Concomitant]
  33. BENADRYL ^ACHE^ [Concomitant]
  34. ZOFRAN [Concomitant]
  35. CATAPRES                                /UNK/ [Concomitant]
  36. CELEXA [Concomitant]
  37. FOLIC ACID [Concomitant]
  38. COLACE [Concomitant]
  39. AUGMENTIN                               /SCH/ [Concomitant]
  40. PEPCID [Concomitant]
  41. KLONOPIN [Concomitant]
  42. CYTOXAN [Concomitant]
  43. MACROBID [Concomitant]
  44. ABRAXANE [Concomitant]
  45. AROMASIN [Concomitant]
  46. INTRALIPID [Concomitant]
  47. FENTANYL [Concomitant]
  48. DILAUDID [Concomitant]
  49. PHENERGAN ^AVENTIS PHARMA^ [Concomitant]
  50. DEMEROL [Concomitant]
  51. LACTULOSE [Concomitant]
  52. NORCO [Concomitant]
  53. ROCEPHIN [Concomitant]
  54. MYLANTA                                 /USA/ [Concomitant]
  55. IMODIUM ^JANSSEN^ [Concomitant]
  56. ZOSYN [Concomitant]
  57. ZITHROMAX ^HEINRICH MACK^ [Concomitant]
  58. FUROSEMIDE [Concomitant]
  59. POTASSIUM CHLORIDE [Concomitant]
  60. NARCAN [Concomitant]
  61. HUMULIN [Concomitant]
  62. TYLENOL [Concomitant]
  63. MORPHINE [Concomitant]
  64. AQUAMEPHYTON [Concomitant]
  65. FLAGYL [Concomitant]
  66. MOBIC [Concomitant]
  67. TORADOL [Concomitant]
  68. UNASYN [Concomitant]
  69. VITAMIN B12 [Concomitant]
  70. BACTRIM DS [Concomitant]
  71. LIDOCAINE [Concomitant]
  72. TRIAMTERENE [Concomitant]
  73. EFFEXOR [Concomitant]
  74. VENLAFAXINE [Concomitant]
  75. ZOLPIDEM [Concomitant]
  76. TEMAZEPAM [Concomitant]
  77. AFINITOR [Concomitant]

REACTIONS (152)
  - Death [Fatal]
  - Osteonecrosis of jaw [Unknown]
  - Facial pain [Not Recovered/Not Resolved]
  - Swelling face [Not Recovered/Not Resolved]
  - Gingival swelling [Not Recovered/Not Resolved]
  - Purulent discharge [Not Recovered/Not Resolved]
  - Osteomyelitis [Unknown]
  - Bone disorder [Unknown]
  - Impaired healing [Unknown]
  - Fistula [Unknown]
  - General physical health deterioration [Unknown]
  - Decreased interest [Unknown]
  - Emotional distress [Unknown]
  - Gingival erythema [Unknown]
  - Pain [Unknown]
  - Localised infection [Recovering/Resolving]
  - Pain in jaw [Recovering/Resolving]
  - Insomnia [Recovering/Resolving]
  - Sensation of pressure [Unknown]
  - Depression [Recovering/Resolving]
  - Metastases to bone [Unknown]
  - Granuloma [Unknown]
  - Defaecation urgency [Unknown]
  - Abdominal pain [Unknown]
  - Metastases to abdominal cavity [Unknown]
  - Rash pruritic [Unknown]
  - Gastrointestinal obstruction [Unknown]
  - Arthralgia [Unknown]
  - Plantar fasciitis [Unknown]
  - Mass [Unknown]
  - Colon neoplasm [Unknown]
  - Large intestinal obstruction [Unknown]
  - Faecaloma [Recovered/Resolved]
  - Anastomotic leak [Unknown]
  - Pancreatic neoplasm [Unknown]
  - Animal bite [Unknown]
  - Traumatic haematoma [Unknown]
  - Haematuria [Unknown]
  - Pneumonia [Unknown]
  - Malnutrition [Unknown]
  - Dyspnoea [Unknown]
  - Febrile neutropenia [Recovering/Resolving]
  - Dysfunctional uterine bleeding [Unknown]
  - Hydronephrosis [Unknown]
  - Renal atrophy [Unknown]
  - Benign neoplasm of thyroid gland [Unknown]
  - Edentulous [Unknown]
  - Ureteric obstruction [Unknown]
  - Pleural effusion [Unknown]
  - Atelectasis [Unknown]
  - Oedema mucosal [Unknown]
  - Serositis [Unknown]
  - Anxiety [Unknown]
  - Metastases to lung [Unknown]
  - Vomiting [Unknown]
  - Nausea [Unknown]
  - Haemorrhage [Unknown]
  - Syncope [Unknown]
  - Local swelling [Unknown]
  - Lymphadenopathy [Unknown]
  - Anaemia [Unknown]
  - Metastases to peritoneum [Unknown]
  - Goitre [Unknown]
  - Intra-abdominal haematoma [Unknown]
  - Colitis [Unknown]
  - Ascites [Unknown]
  - Renal cyst [Unknown]
  - Cellulitis [Unknown]
  - Tinea pedis [Unknown]
  - Dysuria [Unknown]
  - Urinary tract infection [Unknown]
  - Joint stiffness [Unknown]
  - Stomatitis [Unknown]
  - Leukaemia [Unknown]
  - Oral herpes [Unknown]
  - Tooth abscess [Unknown]
  - Gait disturbance [Unknown]
  - Small intestinal obstruction [Unknown]
  - Osteopenia [Unknown]
  - Lymphoedema [Unknown]
  - Malignant neoplasm progression [Unknown]
  - Intestinal perforation [Unknown]
  - Tooth infection [Unknown]
  - Chest pain [Unknown]
  - Joint effusion [Unknown]
  - Pathological fracture [Unknown]
  - Sinus bradycardia [Unknown]
  - Sinus tachycardia [Unknown]
  - Constipation [Unknown]
  - Hypokalaemia [Unknown]
  - Phlebolith [Unknown]
  - Metastases to large intestine [Unknown]
  - Atrophic vulvovaginitis [Unknown]
  - Limb injury [Unknown]
  - Dehydration [Recovering/Resolving]
  - Mucosal inflammation [Unknown]
  - Pollakiuria [Unknown]
  - Rosacea [Unknown]
  - Dermatitis [Unknown]
  - Sciatica [Unknown]
  - Diarrhoea [Recovered/Resolved]
  - Dizziness [Unknown]
  - Dry skin [Unknown]
  - Muscular weakness [Unknown]
  - Lip swelling [Unknown]
  - Bursitis [Unknown]
  - Rash maculo-papular [Unknown]
  - Aortic arteriosclerosis [Unknown]
  - Septic shock [Unknown]
  - Multi-organ disorder [Unknown]
  - Sepsis [Unknown]
  - Thrombocytopenia [Unknown]
  - Coordination abnormal [Unknown]
  - Faecal vomiting [Unknown]
  - Splenic calcification [Unknown]
  - Decubitus ulcer [Unknown]
  - Decreased appetite [Unknown]
  - Dysphagia [Unknown]
  - Paronychia [Unknown]
  - Large intestine polyp [Unknown]
  - Ecchymosis [Unknown]
  - Fall [Unknown]
  - Leukocytosis [Unknown]
  - Confusional state [Unknown]
  - Vision blurred [Unknown]
  - Urethral obstruction [Unknown]
  - Hip fracture [Unknown]
  - Nail dystrophy [Unknown]
  - Hypotension [Unknown]
  - Tachypnoea [Unknown]
  - Diabetes mellitus [Unknown]
  - Tachycardia [Unknown]
  - Femur fracture [Unknown]
  - Klebsiella infection [Unknown]
  - Klebsiella bacteraemia [Unknown]
  - Enterococcal bacteraemia [Unknown]
  - Coagulopathy [Unknown]
  - Tuberculosis [Unknown]
  - Gastrooesophageal reflux disease [Unknown]
  - Osteoporosis [Unknown]
  - Dilatation ventricular [Unknown]
  - Endocarditis [Unknown]
  - Oedema peripheral [Unknown]
  - Weight decreased [Unknown]
  - Erythema [Unknown]
  - Enterococcal infection [Unknown]
  - Heart rate increased [Unknown]
  - Renal failure chronic [Unknown]
  - Abdominal adhesions [Unknown]
  - Dyspepsia [Unknown]
  - Myalgia [Unknown]
  - Abdominal discomfort [Unknown]
